FAERS Safety Report 26195750 (Version 1)
Quarter: 2025Q4

REPORT INFORMATION
  Report Type: Spontaneous
  Country: US (occurrence: US)
  Receive Date: 20251224
  Receipt Date: 20251224
  Transmission Date: 20260117
  Serious: No
  Sender: TAKEDA
  Company Number: US-TAKEDA-2025TUS114954

PATIENT
  Sex: Female

DRUGS (2)
  1. GAMMAGARD LIQUID [Suspect]
     Active Substance: HUMAN IMMUNOGLOBULIN G
     Indication: Product used for unknown indication
     Dosage: UNK
  2. GAMMAGARD LIQUID [Suspect]
     Active Substance: HUMAN IMMUNOGLOBULIN G
     Dosage: UNK

REACTIONS (13)
  - Dehydration [Unknown]
  - Diarrhoea [Recovered/Resolved]
  - Decreased appetite [Unknown]
  - Hypersensitivity [Unknown]
  - Urticaria [Unknown]
  - Gluten sensitivity [Unknown]
  - Pruritus [Unknown]
  - Illness [Unknown]
  - Injection site pain [Unknown]
  - Pain [Unknown]
  - Inflammation [Unknown]
  - Weight increased [Unknown]
  - Food allergy [Unknown]
